FAERS Safety Report 11099727 (Version 1)
Quarter: 2015Q2

REPORT INFORMATION
  Report Type: Report from Study
  Country: JP (occurrence: None)
  Receive Date: 20150506
  Receipt Date: 20150506
  Transmission Date: 20150821
  Serious: Yes (Other)
  Sender: FDA-Public Use
  Company Number: 2015JP003866

PATIENT
  Age: 35 Year
  Sex: Female
  Weight: 78 kg

DRUGS (11)
  1. REGNITE [Suspect]
     Active Substance: GABAPENTIN ENACARBIL
     Indication: RESTLESS LEGS SYNDROME
     Route: 048
     Dates: start: 20130930
  2. MAGLAX  (MAGNESIUM OXIDE) [Concomitant]
     Active Substance: MAGNESIUM OXIDE
  3. CEROCRAL (IFENPRODIL TARTRATE) [Concomitant]
  4. LUNABELL (ETHINYLESTRADIOL, NORETHISTERONE) [Concomitant]
  5. PREDONINE /00016201/ (PREDNISOLONE) [Concomitant]
  6. PROCAINE [Concomitant]
     Active Substance: PROCAINE
  7. TRAMCET [Suspect]
     Active Substance: ACETAMINOPHEN\TRAMADOL
     Indication: FIBROMYALGIA
     Route: 048
     Dates: start: 20140521, end: 20140630
  8. LYRICA [Concomitant]
     Active Substance: PREGABALIN
  9. GABAPEN (GABAPENTIN) TABLET, 300MG [Suspect]
     Active Substance: GABAPENTIN
     Indication: FIBROMYALGIA
     Route: 048
     Dates: start: 20140107
  10. AMOBAN (ZOPICLONE) [Concomitant]
  11. NEUROTROPIN /00398601/ (CYANOCOBALAMIN, LIDOCAINE HYDROCHLORIDE, PYRIDOXINE HYDROCHLORIDE, THIAMINE HYDROCHLORIDE) [Concomitant]

REACTIONS (4)
  - Dizziness [None]
  - Urticaria [None]
  - Abdominal pain lower [None]
  - Eczema [None]

NARRATIVE: CASE EVENT DATE: 20131210
